FAERS Safety Report 18384326 (Version 1)
Quarter: 2020Q4

REPORT INFORMATION
  Report Type: Spontaneous
  Country: CZ (occurrence: CZ)
  Receive Date: 20201014
  Receipt Date: 20201014
  Transmission Date: 20210114
  Serious: Yes (Death, Other)
  Sender: FDA-Public Use
  Company Number: CZ-PURDUE-USA-2020-0170556

PATIENT
  Sex: Male

DRUGS (15)
  1. RIVOTRIL [Suspect]
     Active Substance: CLONAZEPAM
     Dosage: 16 MG, DAILY
     Route: 065
  2. SUBUTEX [Suspect]
     Active Substance: BUPRENORPHINE HYDROCHLORIDE
     Indication: PAIN
     Dosage: 16 MG, UNK
     Route: 065
     Dates: start: 2006
  3. ALCOHOL. [Suspect]
     Active Substance: ALCOHOL
     Indication: PRODUCT USED FOR UNKNOWN INDICATION
     Dosage: UNK
     Route: 065
  4. TIAPRIDAL [Suspect]
     Active Substance: TIAPRIDE HYDROCHLORIDE
     Indication: SLEEP DISORDER
     Dosage: UNK
     Route: 065
  5. SUBUTEX [Suspect]
     Active Substance: BUPRENORPHINE HYDROCHLORIDE
     Indication: WITHDRAWAL SYNDROME
     Dosage: 8 MG, QID
     Route: 065
  6. METHADONE [Suspect]
     Active Substance: METHADONE HYDROCHLORIDE
     Indication: DRUG DEPENDENCE
     Dosage: UNK
     Route: 065
     Dates: start: 2008, end: 2013
  7. RIVOTRIL [Suspect]
     Active Substance: CLONAZEPAM
     Indication: PRODUCT USED FOR UNKNOWN INDICATION
     Dosage: 4 MG, DAILY
     Route: 065
     Dates: start: 2006, end: 201401
  8. SUBOXONE [Suspect]
     Active Substance: BUPRENORPHINE HYDROCHLORIDE\NALOXONE HYDROCHLORIDE
     Indication: DRUG DEPENDENCE
     Dosage: 5 MG, BID
     Route: 065
     Dates: start: 2016
  9. DIAZEPAM. [Suspect]
     Active Substance: DIAZEPAM
     Indication: PRODUCT USED FOR UNKNOWN INDICATION
     Dosage: UNK
     Route: 065
  10. BUPRENORPHINE. [Suspect]
     Active Substance: BUPRENORPHINE
     Indication: ARTHRALGIA
     Dosage: 35 MCG, Q1H
     Route: 062
  11. BUPRENORPHINE. [Suspect]
     Active Substance: BUPRENORPHINE
     Dosage: 52 MCG, Q1H
     Route: 065
  12. RIVOTRIL [Suspect]
     Active Substance: CLONAZEPAM
     Dosage: 2 MG, DAILY
     Route: 065
     Dates: start: 2006
  13. BUPRENORPHINE. [Suspect]
     Active Substance: BUPRENORPHINE
     Dosage: 70 MCG, Q1H
     Route: 065
     Dates: start: 201307
  14. BUPRENORPHINE. [Suspect]
     Active Substance: BUPRENORPHINE
     Dosage: 122 MCG, Q1H
     Route: 065
     Dates: start: 201609
  15. ROHYPNOL [Suspect]
     Active Substance: FLUNITRAZEPAM
     Indication: DRUG DEPENDENCE
     Dosage: UNK
     Route: 065

REACTIONS (17)
  - Pneumonia [Unknown]
  - Osteonecrosis [Unknown]
  - Skin ulcer [Unknown]
  - Death [Fatal]
  - Ulcer haemorrhage [Unknown]
  - Cachexia [Unknown]
  - Abscess [Unknown]
  - Arterial disorder [Unknown]
  - Anal fistula [Unknown]
  - Gastrointestinal haemorrhage [Unknown]
  - Arthralgia [Unknown]
  - Fistula [Unknown]
  - Abnormal behaviour [Unknown]
  - Arthritis infective [Unknown]
  - Tooth extraction [Unknown]
  - Inflammation [Unknown]
  - Lymphadenopathy [Unknown]

NARRATIVE: CASE EVENT DATE: 2003
